FAERS Safety Report 15005442 (Version 2)
Quarter: 2018Q2

REPORT INFORMATION
  Report Type: Report from Study
  Country: BR (occurrence: BR)
  Receive Date: 20180613
  Receipt Date: 20180629
  Transmission Date: 20180711
  Serious: Yes (Hospitalization, Other)
  Sender: FDA-Public Use
  Company Number: BR-ACTELION-A-CH2018-173649

PATIENT
  Age: 22 Year
  Sex: Female
  Weight: 54 kg

DRUGS (2)
  1. MIGLUSTAT CAPSULE 100 MG NPC ROW [Suspect]
     Active Substance: MIGLUSTAT
     Indication: NIEMANN-PICK DISEASE
     Dosage: 100 MG, BID
     Route: 048
     Dates: start: 200406
  2. MIGLUSTAT CAPSULE 100 MG NPC ROW [Suspect]
     Active Substance: MIGLUSTAT
     Dosage: 600 MG, QD
     Route: 048

REACTIONS (4)
  - Pneumonia [Unknown]
  - Infection [Unknown]
  - Feeding tube user [Unknown]
  - Tracheostomy [Unknown]

NARRATIVE: CASE EVENT DATE: 2012
